FAERS Safety Report 6035319-4 (Version None)
Quarter: 2009Q1

REPORT INFORMATION
  Report Type: 
  Country: None (occurrence: None)
  Receive Date: 20090108
  Receipt Date: 20081231
  Transmission Date: 20090719
  Serious: Yes (Other)
  Sender: FDA-Public Use
  Company Number: DSA_32954_2008

PATIENT
  Weight: 2.5 kg

DRUGS (4)
  1. LORAZEPAM [Suspect]
     Indication: DRUG USE FOR UNKNOWN INDICATION
     Dosage: (1 MG BID ORAL), (1-1.5 MG)
     Route: 048
  2. CONCOR /00802601/ (CONCOR - BISOPROLOL) (NOT SPECIFIED) [Suspect]
     Indication: ESSENTIAL HYPERTENSION
     Dosage: (5 MG QD ORAL)
     Route: 048
  3. AMITRIPTYLINE HCL [Suspect]
     Indication: DEPRESSION
     Dosage: (25 MG QD ORAL) , (TAPERING OFF)
     Route: 048
     Dates: start: 20080101, end: 20080601
  4. ZURCAL /01263201/ (ZURCAL - PANTOPRAZOLE DELAYED RELEASE) (NOT SPECIFI [Suspect]
     Indication: DRUG USE FOR UNKNOWN INDICATION
     Dosage: (DF ON DEMAND)

REACTIONS (3)
  - CAESAREAN SECTION [None]
  - FOETAL GROWTH RETARDATION [None]
  - MATERNAL DRUGS AFFECTING FOETUS [None]
